FAERS Safety Report 16684297 (Version 1)
Quarter: 2019Q3

REPORT INFORMATION
  Report Type: Spontaneous
  Country: GB (occurrence: GB)
  Receive Date: 20190808
  Receipt Date: 20190808
  Transmission Date: 20191004
  Serious: Yes (Life-Threatening, Hospitalization)
  Sender: FDA-Public Use
  Company Number: GB-TEVA-2019-GB-1089432

PATIENT
  Age: 70 Year
  Sex: Male

DRUGS (14)
  1. PARACETAMOL [Concomitant]
     Active Substance: ACETAMINOPHEN
     Route: 048
  2. FINASTERIDE. [Concomitant]
     Active Substance: FINASTERIDE
     Dosage: EVERY MORNING
     Route: 048
  3. PREGABALIN. [Concomitant]
     Active Substance: PREGABALIN
     Route: 048
  4. FLUOROURACIL. [Concomitant]
     Active Substance: FLUOROURACIL
     Route: 041
  5. NAPROXEN. [Suspect]
     Active Substance: NAPROXEN
     Route: 048
     Dates: start: 20190310, end: 20190410
  6. AMITRIPTYLINE [Concomitant]
     Active Substance: AMITRIPTYLINE
     Dosage: EACH NIGHT
     Route: 048
  7. ABSTRAL [Concomitant]
     Active Substance: FENTANYL CITRATE
     Route: 060
  8. CYCLIZINE [Concomitant]
     Active Substance: CYCLIZINE
     Dosage: THREE DAILY
     Route: 048
  9. ABSTRAL [Concomitant]
     Active Substance: FENTANYL CITRATE
     Route: 060
  10. FENTANYL. [Concomitant]
     Active Substance: FENTANYL
     Dosage: 100MICROGRAMS/HOUR
     Route: 062
  11. CREON [Concomitant]
     Active Substance: PANCRELIPASE AMYLASE\PANCRELIPASE LIPASE\PANCRELIPASE PROTEASE
     Dosage: WITH MEALS
     Route: 048
  12. DOCUSATE [Concomitant]
     Active Substance: DOCUSATE
     Route: 048
  13. OXYCODONE [Concomitant]
     Active Substance: OXYCODONE
     Route: 048
  14. LANSOPRAZOLE. [Concomitant]
     Active Substance: LANSOPRAZOLE
     Dosage: EVERY MORNING
     Route: 048

REACTIONS (3)
  - Dyspepsia [Unknown]
  - Duodenal ulcer haemorrhage [Recovered/Resolved with Sequelae]
  - Gastrooesophageal reflux disease [Unknown]

NARRATIVE: CASE EVENT DATE: 20190410
